FAERS Safety Report 12412206 (Version 3)
Quarter: 2017Q1

REPORT INFORMATION
  Report Type: Spontaneous
  Country: US (occurrence: US)
  Receive Date: 20160527
  Receipt Date: 20170220
  Transmission Date: 20170428
  Serious: Yes (Death, Other)
  Sender: FDA-Public Use
  Company Number: US-RAPTOR-RAP-001063-2016

PATIENT
  Sex: Female

DRUGS (2)
  1. PROCYSBI DELAYED-RELEASE [Suspect]
     Active Substance: CYSTEAMINE BITARTRATE
     Indication: CYSTINOSIS
     Dosage: 750 MG EVERY 12 HOURS
     Route: 048
     Dates: start: 201311, end: 201605
  2. VIMPAT [Concomitant]
     Active Substance: LACOSAMIDE
     Indication: PRODUCT USED FOR UNKNOWN INDICATION
     Route: 065

REACTIONS (4)
  - Aspiration [Fatal]
  - Pneumonia [Fatal]
  - Seizure [Fatal]
  - Vomiting [Fatal]
